FAERS Safety Report 5564638-0 (Version None)
Quarter: 2007Q4

REPORT INFORMATION
  Report Type: 
  Country: None (occurrence: None)
  Receive Date: 20071218
  Receipt Date: 20071206
  Transmission Date: 20080405
  Serious: Yes (Other)
  Sender: FDA-Public Use
  Company Number: US-AMGEN-QUU254764

PATIENT
  Sex: Male
  Weight: 72.6 kg

DRUGS (5)
  1. ENBREL [Suspect]
     Indication: PSORIASIS
     Route: 058
     Dates: start: 20041116
  2. SPIRIVA [Concomitant]
  3. ALBUTEROL [Concomitant]
  4. PRAVACHOL [Concomitant]
  5. ZETIA [Concomitant]

REACTIONS (9)
  - ATELECTASIS [None]
  - BRONCHITIS CHRONIC [None]
  - CARDIOMEGALY [None]
  - CHRONIC OBSTRUCTIVE PULMONARY DISEASE [None]
  - INJECTION SITE HAEMORRHAGE [None]
  - INJECTION SITE PAIN [None]
  - LOWER RESPIRATORY TRACT INFECTION [None]
  - OSTEOARTHRITIS [None]
  - PSORIASIS [None]
